FAERS Safety Report 9896774 (Version 2)
Quarter: 2014Q1

REPORT INFORMATION
  Report Type: Spontaneous
  Country: US (occurrence: US)
  Receive Date: 20140213
  Receipt Date: 20140213
  Transmission Date: 20141002
  Serious: No
  Sender: FDA-Public Use
  Company Number: US-BRISTOL-MYERS SQUIBB COMPANY-19193432

PATIENT
  Age: 80 Year
  Sex: Female
  Weight: 68.48 kg

DRUGS (1)
  1. ORENCIA [Suspect]

REACTIONS (2)
  - Weight increased [Unknown]
  - Drug ineffective [Unknown]
